FAERS Safety Report 8421435-6 (Version None)
Quarter: 2012Q2

REPORT INFORMATION
  Report Type: 
  Country: None (occurrence: None)
  Receive Date: 20120608
  Receipt Date: 20120605
  Transmission Date: 20120825
  Serious: Yes (Other)
  Sender: FDA-Public Use
  Company Number: PHHY2012JP048604

PATIENT
  Age: 94 Year
  Sex: Female

DRUGS (1)
  1. EXFORGE [Suspect]
     Dosage: 1 DF, DAILY
     Route: 048

REACTIONS (2)
  - DEMENTIA [None]
  - DISEASE PROGRESSION [None]
